FAERS Safety Report 7538857-8 (Version None)
Quarter: 2011Q2

REPORT INFORMATION
  Report Type: 
  Country: None (occurrence: None)
  Receive Date: 20110524
  Receipt Date: 20110331
  Transmission Date: 20111010
  Serious: No
  Sender: FDA-Public Use
  Company Number: 030553

PATIENT
  Sex: Male

DRUGS (1)
  1. CIMZIA [Suspect]
     Dosage: (400 MG TO HIS LEFT THIGH SUBCUTANEOUS)
     Route: 058
     Dates: start: 20110317

REACTIONS (1)
  - HEADACHE [None]
